FAERS Safety Report 8998121 (Version 1)
Quarter: 2013Q1

REPORT INFORMATION
  Report Type: Report from Study
  Country: FR (occurrence: FR)
  Receive Date: 20130104
  Receipt Date: 20130104
  Transmission Date: 20140127
  Serious: Yes (Hospitalization)
  Sender: FDA-Public Use
  Company Number: FR-BRISTOL-MYERS SQUIBB COMPANY-15149990

PATIENT
  Age: 73 Year
  Sex: Male

DRUGS (9)
  1. DASATINIB [Suspect]
     Indication: PROSTATE CANCER
     Dosage: INTERRUPTED ON 14JUN10
     Route: 048
     Dates: start: 20100208
  2. TAXOTERE [Suspect]
     Indication: PROSTATE CANCER
     Route: 042
     Dates: start: 20100208
  3. PREDNISONE [Suspect]
     Indication: PROSTATE CANCER
     Route: 048
  4. DEXAMETHASONE [Suspect]
     Indication: PREMEDICATION
     Dosage: 8 MG AT 12 HOURS, 3 HOURS AND 1 HOUR PRIOR TO DOCETAXEL INFUSION
  5. LERCAN [Concomitant]
     Dates: start: 20090102, end: 20100614
  6. NEBIVOLOL [Concomitant]
     Dates: start: 20090102, end: 20100614
  7. INEXIUM [Concomitant]
     Dates: start: 20100128
  8. ZOMETA [Concomitant]
     Dates: start: 20090916
  9. ARANESP [Concomitant]
     Dates: start: 20100504

REACTIONS (2)
  - Colitis [Recovered/Resolved]
  - Dehydration [Recovered/Resolved]
